FAERS Safety Report 5217264-7 (Version None)
Quarter: 2007Q1

REPORT INFORMATION
  Report Type: 
  Country: None (occurrence: None)
  Receive Date: 20070124
  Receipt Date: 20060315
  Transmission Date: 20070707
  Serious: No
  Sender: FDA-Public Use
  Company Number: US-GLAXOSMITHKLINE-A0533130A

PATIENT
  Sex: Male

DRUGS (3)
  1. PAXIL CR [Suspect]
     Indication: DRUG USE FOR UNKNOWN INDICATION
     Dosage: 12MG AT NIGHT
     Route: 048
  2. PAXIL [Concomitant]
     Indication: DRUG USE FOR UNKNOWN INDICATION
  3. WELLBUTRIN XL [Concomitant]
     Dosage: 150MG TWICE PER DAY
     Dates: start: 20060301

REACTIONS (4)
  - EMOTIONAL DISORDER [None]
  - FATIGUE [None]
  - MENTAL IMPAIRMENT [None]
  - SOMNOLENCE [None]
